FAERS Safety Report 26117252 (Version 1)
Quarter: 2025Q4

REPORT INFORMATION
  Report Type: Spontaneous
  Country: NZ (occurrence: NZ)
  Receive Date: 20251203
  Receipt Date: 20251203
  Transmission Date: 20260117
  Serious: Yes (Other)
  Sender: SANDOZ
  Company Number: NZ-SANDOZ-SDZ2025NZ083075

PATIENT
  Sex: Female

DRUGS (5)
  1. ESTRADIOL [Suspect]
     Active Substance: ESTRADIOL
     Indication: Hormone replacement therapy
     Dosage: 75 MG, BIW( ESTRADOT 75 MCG/24H TRANSDERMAL PATCH)
     Route: 062
     Dates: start: 201507
  2. ESTRADIOL [Suspect]
     Active Substance: ESTRADIOL
     Indication: Artificial menopause
  3. ESTRADIOL [Suspect]
     Active Substance: ESTRADIOL
     Indication: Oophorectomy
  4. ESTRIOL [Concomitant]
     Active Substance: ESTRIOL
     Indication: Product used for unknown indication
     Dosage: UNK, BIW
     Route: 065
     Dates: start: 2023
  5. UTROGESTAN [Concomitant]
     Active Substance: PROGESTERONE
     Indication: Product used for unknown indication
     Dosage: PROGESTERONE 200MG DAILY BY MOUTH
     Route: 065
     Dates: start: 201507

REACTIONS (5)
  - Pelvic pain [Not Recovered/Not Resolved]
  - Symptom recurrence [Unknown]
  - Breast tenderness [Unknown]
  - Fatigue [Unknown]
  - Product adhesion issue [Unknown]

NARRATIVE: CASE EVENT DATE: 20250101
